FAERS Safety Report 13649252 (Version 2)
Quarter: 2017Q2

REPORT INFORMATION
  Report Type: Report from Study
  Country: CN (occurrence: CN)
  Receive Date: 20170613
  Receipt Date: 20170627
  Transmission Date: 20170830
  Serious: Yes (Other)
  Sender: FDA-Public Use
  Company Number: CN-PFM-2017-04888

PATIENT
  Age: 66 Year
  Sex: Female

DRUGS (1)
  1. VINORELBINE TARTRATE. [Suspect]
     Active Substance: VINORELBINE TARTRATE
     Indication: BREAST CANCER
     Dosage: 160 MG, SINGLE
     Route: 048
     Dates: start: 20170123, end: 20170405

REACTIONS (3)
  - Hepatic cirrhosis [Unknown]
  - White blood cell count decreased [Unknown]
  - Dysphagia [Unknown]

NARRATIVE: CASE EVENT DATE: 20170607
